FAERS Safety Report 8083193-7 (Version None)
Quarter: 2012Q1

REPORT INFORMATION
  Report Type: 
  Country: None (occurrence: None)
  Receive Date: 20120127
  Receipt Date: 20110215
  Transmission Date: 20120608
  Serious: No
  Sender: FDA-Public Use
  Company Number: US-ABBOTT-11P-163-0705321-00

PATIENT
  Sex: Male
  Weight: 127.12 kg

DRUGS (3)
  1. HUMIRA [Suspect]
     Indication: ANKYLOSING SPONDYLITIS
     Route: 058
     Dates: start: 20110101
  2. IBUPROFEN [Concomitant]
     Indication: ARTHRALGIA
     Dosage: AS NEEDED
     Route: 048
  3. HUMIRA [Suspect]
     Route: 058
     Dates: start: 20100901, end: 20101001

REACTIONS (2)
  - MUSCULOSKELETAL STIFFNESS [None]
  - MOBILITY DECREASED [None]
